FAERS Safety Report 22610964 (Version 1)
Quarter: 2023Q2

REPORT INFORMATION
  Report Type: Spontaneous
  Country: US (occurrence: US)
  Receive Date: 20230616
  Receipt Date: 20230616
  Transmission Date: 20230722
  Serious: Yes (Hospitalization, Other)
  Sender: FDA-Public Use
  Company Number: US-SUN PHARMACEUTICAL INDUSTRIES LTD-2023R1-394843

PATIENT
  Age: 52 Year
  Sex: Female

DRUGS (5)
  1. CIPROFLOXACIN [Interacting]
     Active Substance: CIPROFLOXACIN
     Indication: Pseudomonas peritonitis
     Dosage: 500 MILLIGRAM, QD
     Route: 065
  2. SEVELAMER [Interacting]
     Active Substance: SEVELAMER
     Indication: Pseudomonas peritonitis
     Dosage: 2400 MILLIGRAM, TID
     Route: 065
  3. LISINOPRIL [Concomitant]
     Active Substance: LISINOPRIL
     Indication: Pseudomonas peritonitis
     Dosage: 20 MILLIGRAM, QD
     Route: 065
  4. NIFEDIPINE [Concomitant]
     Active Substance: NIFEDIPINE
     Indication: Pseudomonas peritonitis
     Dosage: 60 MILLIGRAM, QD
     Route: 065
  5. colicalciferol [Concomitant]
     Indication: Pseudomonas peritonitis
     Dosage: 50,000 Q, WEEKLY
     Route: 065

REACTIONS (2)
  - Disease recurrence [Unknown]
  - Drug interaction [Unknown]
